FAERS Safety Report 15328637 (Version 1)
Quarter: 2018Q3

REPORT INFORMATION
  Report Type: Spontaneous
  Country: FI (occurrence: FI)
  Receive Date: 20180829
  Receipt Date: 20180829
  Transmission Date: 20181010
  Serious: Yes (Other)
  Sender: FDA-Public Use
  Company Number: FI-AUROBINDO-AUR-APL-2018-043164

PATIENT
  Sex: Male

DRUGS (5)
  1. LEPONEX [Suspect]
     Active Substance: CLOZAPINE
     Dosage: 100 MILLIGRAM, DAILY
     Route: 065
     Dates: start: 201807, end: 201807
  2. LAPENAX [Suspect]
     Active Substance: CLOZAPINE
     Dosage: UNK
     Route: 065
  3. OLANZAPINE. [Suspect]
     Active Substance: OLANZAPINE
     Indication: PRODUCT USED FOR UNKNOWN INDICATION
     Dosage: UNK
     Route: 065
     Dates: end: 201807
  4. LAPENAX [Suspect]
     Active Substance: CLOZAPINE
     Indication: PRODUCT USED FOR UNKNOWN INDICATION
     Dosage: 300 MILLIGRAM, DAILY
     Route: 065
     Dates: start: 201807
  5. LEPONEX [Suspect]
     Active Substance: CLOZAPINE
     Indication: PRODUCT USED FOR UNKNOWN INDICATION
     Dosage: UNK
     Route: 065
     Dates: end: 201807

REACTIONS (3)
  - Neuroleptic malignant syndrome [Recovering/Resolving]
  - Pancreatic disorder [Not Recovered/Not Resolved]
  - Blood creatine phosphokinase decreased [Unknown]

NARRATIVE: CASE EVENT DATE: 201807
